FAERS Safety Report 4804050-2 (Version None)
Quarter: 2005Q4

REPORT INFORMATION
  Report Type: 
  Country: None (occurrence: None)
  Receive Date: 20051014
  Receipt Date: 20051004
  Transmission Date: 20060501
  Serious: Yes (Hospitalization, Disabling, Other)
  Sender: FDA-Public Use
  Company Number: 2005138272

PATIENT
  Age: 36 Year
  Sex: Female

DRUGS (10)
  1. GEODON [Suspect]
     Indication: PARANOIA
     Dosage: 80 MG (80 MG, 1 IN 1 D), ORAL
     Route: 048
     Dates: start: 20041001
  2. NAVANE [Suspect]
     Indication: PARANOIA
     Dosage: ORAL
     Route: 048
  3. VALPROIC ACID [Suspect]
     Indication: BIPOLAR DISORDER
     Dates: start: 20000101
  4. RISPERDAL [Suspect]
     Indication: PARANOIA
  5. ALL OTHER THERAPEUTIC PRODUCTS (ALL OTHER THERAPEUTIC PRODUCTS) [Suspect]
     Indication: PARANOIA
  6. ALL OTHER THERAPEUTIC PRODUCTS (ALL OTHER THERAPEUTIC PRODUCTS) [Suspect]
     Indication: TREMOR
  7. INSULIN [Concomitant]
  8. ANTI-DIABETICS (ANTI-DIABETICS) [Concomitant]
  9. METFORMIN (METFORMIN) [Concomitant]
  10. CITALOPRAM (CITALOPRAM) [Concomitant]

REACTIONS (11)
  - BLOOD CHOLESTEROL INCREASED [None]
  - CONDITION AGGRAVATED [None]
  - DIARRHOEA [None]
  - DRUG INEFFECTIVE [None]
  - EATING DISORDER [None]
  - GASTROOESOPHAGEAL REFLUX DISEASE [None]
  - INSOMNIA [None]
  - LOSS OF EMPLOYMENT [None]
  - SLEEP APNOEA SYNDROME [None]
  - THERAPEUTIC RESPONSE UNEXPECTED WITH DRUG SUBSTITUTION [None]
  - TREMOR [None]
